FAERS Safety Report 18988943 (Version 1)
Quarter: 2021Q1

REPORT INFORMATION
  Report Type: Spontaneous
  Country: GB (occurrence: GB)
  Receive Date: 20210309
  Receipt Date: 20210309
  Transmission Date: 20210420
  Serious: Yes (Life-Threatening, Disabling, Other)
  Sender: FDA-Public Use
  Company Number: GB-AUROBINDO-AUR-APL-2021-009355

PATIENT
  Age: 55 Year
  Sex: Female
  Weight: 62.13 kg

DRUGS (20)
  1. SERTRALINE [Suspect]
     Active Substance: SERTRALINE HYDROCHLORIDE
     Indication: ANXIETY
     Dosage: 50 MILLIGRAM
     Route: 048
     Dates: start: 20190706, end: 20210222
  2. COCODAMOL [Concomitant]
     Active Substance: ACETAMINOPHEN\CODEINE PHOSPHATE
     Indication: ILL-DEFINED DISORDER
     Dosage: UNK
     Route: 065
  3. SERTRALINE [Concomitant]
     Active Substance: SERTRALINE HYDROCHLORIDE
     Indication: ILL-DEFINED DISORDER
     Dosage: UNK
     Route: 065
  4. BUSCOPAN [Concomitant]
     Active Substance: BUTYLSCOPOLAMINE BROMIDE
     Indication: ILL-DEFINED DISORDER
     Dosage: UNK
     Route: 065
  5. VITAMIN C [Concomitant]
     Active Substance: ASCORBIC ACID
     Indication: ILL-DEFINED DISORDER
     Dosage: UNK
     Route: 065
  6. VITAMIN E [Concomitant]
     Active Substance: .ALPHA.-TOCOPHEROL
     Indication: ILL-DEFINED DISORDER
     Dosage: UNK
     Route: 065
  7. EUMOVATE [Concomitant]
     Active Substance: CLOBETASONE BUTYRATE
     Indication: ILL-DEFINED DISORDER
     Dosage: UNK
     Route: 065
  8. ROSUVASTATIN. [Concomitant]
     Active Substance: ROSUVASTATIN
     Indication: ILL-DEFINED DISORDER
     Dosage: 5 MILLIGRAM
     Route: 065
  9. VITAMIN D [Concomitant]
     Active Substance: VITAMIN D NOS
     Indication: ILL-DEFINED DISORDER
     Dosage: UNK
     Route: 065
  10. DIAZEPAM. [Concomitant]
     Active Substance: DIAZEPAM
     Indication: ILL-DEFINED DISORDER
     Dosage: 2 MILLIGRAM
     Route: 065
  11. EMTRICITABINE [Concomitant]
     Active Substance: EMTRICITABINE
     Indication: ILL-DEFINED DISORDER
     Dosage: UNK
     Route: 065
  12. SCHOLL FOOT [Concomitant]
     Indication: ILL-DEFINED DISORDER
     Dosage: UNK
     Route: 065
  13. WHITE SOFT PARAFFIN [Concomitant]
     Active Substance: PARAFFIN
     Indication: ILL-DEFINED DISORDER
     Dosage: UNK
     Route: 065
  14. BALNEUM [Concomitant]
     Indication: ILL-DEFINED DISORDER
     Dosage: UNK
     Route: 065
  15. FAMOTIDINE. [Concomitant]
     Active Substance: FAMOTIDINE
     Indication: ILL-DEFINED DISORDER
     Dosage: 40 MILLIGRAM
     Route: 065
  16. BECONASE AQ [Concomitant]
     Active Substance: BECLOMETHASONE DIPROPIONATE MONOHYDRATE
     Indication: ILL-DEFINED DISORDER
     Dosage: UNK
     Route: 065
  17. DARUNAVIR [Concomitant]
     Active Substance: DARUNAVIR
     Indication: ILL-DEFINED DISORDER
     Dosage: UNK
     Route: 065
  18. DIPROBASE [Concomitant]
     Active Substance: CHLOROCRESOL
     Indication: ILL-DEFINED DISORDER
     Dosage: UNK
     Route: 065
  19. FOLIC ACID. [Concomitant]
     Active Substance: FOLIC ACID
     Indication: ILL-DEFINED DISORDER
     Dosage: UNK
     Route: 065
  20. SCHOLL ATHLET FOOT [Concomitant]
     Indication: ILL-DEFINED DISORDER
     Dosage: UNK
     Route: 065

REACTIONS (83)
  - Hyperhidrosis [Not Recovered/Not Resolved]
  - Suicidal ideation [Not Recovered/Not Resolved]
  - Chills [Unknown]
  - Swelling [Unknown]
  - Epistaxis [Unknown]
  - Tremor [Unknown]
  - Paraesthesia [Unknown]
  - Abdominal discomfort [Unknown]
  - Confusional state [Not Recovered/Not Resolved]
  - Diarrhoea [Not Recovered/Not Resolved]
  - Rash pruritic [Not Recovered/Not Resolved]
  - Restlessness [Not Recovered/Not Resolved]
  - Oropharyngeal pain [Not Recovered/Not Resolved]
  - Hypersensitivity [Unknown]
  - Amnesia [Unknown]
  - Blister [Unknown]
  - Gastroenteritis [Unknown]
  - Pollakiuria [Unknown]
  - Muscle tightness [Unknown]
  - Purpura [Unknown]
  - Peripheral swelling [Unknown]
  - Thirst [Unknown]
  - Urinary hesitation [Unknown]
  - Vulvovaginal dryness [Unknown]
  - Weight decreased [Unknown]
  - Condition aggravated [Unknown]
  - Product label issue [Unknown]
  - Lip blister [Not Recovered/Not Resolved]
  - Back pain [Unknown]
  - Headache [Unknown]
  - Myalgia [Unknown]
  - Musculoskeletal stiffness [Unknown]
  - Hypoaesthesia [Unknown]
  - Dyspnoea [Unknown]
  - Agitation [Not Recovered/Not Resolved]
  - Palpitations [Not Recovered/Not Resolved]
  - Dry skin [Unknown]
  - Hot flush [Unknown]
  - Photophobia [Unknown]
  - Feeling hot [Unknown]
  - Nightmare [Unknown]
  - Melaena [Unknown]
  - Chest pain [Unknown]
  - Dyskinesia [Unknown]
  - Malaise [Unknown]
  - Muscular weakness [Unknown]
  - Palpitations [Unknown]
  - Tinnitus [Unknown]
  - Lymphadenopathy [Unknown]
  - Respiratory rate increased [Unknown]
  - Swelling face [Not Recovered/Not Resolved]
  - Blood urine present [Unknown]
  - Dizziness postural [Unknown]
  - Ear pain [Unknown]
  - Feeling abnormal [Unknown]
  - Genital discharge [Unknown]
  - Alopecia [Unknown]
  - Paranoia [Unknown]
  - Rhinorrhoea [Unknown]
  - Skin odour abnormal [Unknown]
  - Lip swelling [Not Recovered/Not Resolved]
  - Oral pain [Not Recovered/Not Resolved]
  - Respiratory rate decreased [Unknown]
  - Decreased appetite [Unknown]
  - Ear infection [Unknown]
  - Vitreous floaters [Unknown]
  - Trismus [Unknown]
  - Nocturia [Unknown]
  - Dysphagia [Unknown]
  - Dysgeusia [Unknown]
  - Swelling of eyelid [Not Recovered/Not Resolved]
  - Breast haemorrhage [Unknown]
  - Chest discomfort [Unknown]
  - Mydriasis [Unknown]
  - Arthralgia [Unknown]
  - Dizziness [Unknown]
  - Mass [Unknown]
  - Muscle spasms [Unknown]
  - Osteoarthritis [Unknown]
  - Poor peripheral circulation [Unknown]
  - Pupils unequal [Unknown]
  - Speech disorder [Unknown]
  - Throat tightness [Unknown]

NARRATIVE: CASE EVENT DATE: 20190708
